FAERS Safety Report 7806135-5 (Version None)
Quarter: 2011Q4

REPORT INFORMATION
  Report Type: 
  Country: None (occurrence: None)
  Receive Date: 20111011
  Receipt Date: 20111007
  Transmission Date: 20120403
  Serious: No
  Sender: FDA-Public Use
  Company Number: US-PFIZER INC-2011229166

PATIENT
  Sex: Female
  Weight: 69 kg

DRUGS (8)
  1. LIPITOR [Concomitant]
     Indication: BLOOD CHOLESTEROL INCREASED
     Dosage: 10 MG, UNK
  2. SOMAVERT [Suspect]
     Indication: ACROMEGALY
     Dosage: 20 MG, 1X/DAY
     Route: 058
     Dates: start: 20080401
  3. NEVANAC [Concomitant]
     Indication: CATARACT OPERATION
     Dosage: UNK
  4. ATENOLOL [Concomitant]
     Indication: HYPERTENSION
     Dosage: 25 MG, 1X/DAY
  5. LUMIGAN [Concomitant]
     Indication: GLAUCOMA
     Dosage: 0.03 %, 1X/DAY
  6. AMLODIPINE [Concomitant]
     Indication: HYPERTENSION
     Dosage: 5 MG, 1X/DAY
  7. CALTRATE 600 +D PLUS [Concomitant]
  8. OMEPRAZOLE [Concomitant]
     Indication: GASTROOESOPHAGEAL REFLUX DISEASE
     Dosage: 20 MG, 1X/DAY

REACTIONS (2)
  - POOR QUALITY DRUG ADMINISTERED [None]
  - DEPRESSION [None]
